FAERS Safety Report 7567983-2 (Version None)
Quarter: 2011Q2

REPORT INFORMATION
  Report Type: 
  Country: None (occurrence: None)
  Receive Date: 20110616
  Receipt Date: 20110607
  Transmission Date: 20111010
  Serious: Yes (Hospitalization)
  Sender: FDA-Public Use
  Company Number: 2011-1824

PATIENT
  Age: 81 Year
  Sex: Male

DRUGS (1)
  1. APO-GO (APOMORPHINE HYDROCHLORIDE) (APOMORPHINE HYDROCHLORIDE) [Suspect]
     Indication: PRODUCT USED FOR UNKNOWN INDICATION
     Dosage: NOT REPORTED, SUBCUTANEOUS
     Route: 058
     Dates: start: 20110214, end: 20110512

REACTIONS (2)
  - FALL [None]
  - FEMUR FRACTURE [None]
